FAERS Safety Report 4861836-6 (Version None)
Quarter: 2005Q4

REPORT INFORMATION
  Report Type: 
  Country: None (occurrence: None)
  Receive Date: 20051130
  Receipt Date: 20050209
  Transmission Date: 20060501
  Serious: Yes (Other)
  Sender: FDA-Public Use
  Company Number: 2005027431

PATIENT
  Age: 38 Year
  Sex: Female
  Weight: 43.0917 kg

DRUGS (8)
  1. LINEZOLID TABLET (LINEZOLID) [Suspect]
     Indication: TUBERCULOSIS
     Dosage: 1200 MG (600 MG, TWICE DAILY), ORAL;  600 MG (600 MG, DAILY), ORAL
     Route: 048
     Dates: start: 20041214
  2. FOSAMPRENAVIR (FOSAMPRENAVIR) [Concomitant]
  3. LEVOFLOXACIN [Concomitant]
  4. AMINOSALICYLIC ACID (AMINOSALICYCLIC ACID) [Concomitant]
  5. TICLOPIDINE (TICLOPIDINE) [Concomitant]
  6. CAPREOMYCIN (CAPREOMYCIN) [Concomitant]
  7. INSULIN [Concomitant]
  8. FOSINOPRIL SODIUM [Concomitant]

REACTIONS (2)
  - ANAEMIA [None]
  - BLOOD CREATININE INCREASED [None]
